FAERS Safety Report 5003928-7 (Version None)
Quarter: 2006Q2

REPORT INFORMATION
  Report Type: 
  Country: None (occurrence: None)
  Receive Date: 20060515
  Receipt Date: 20060515
  Transmission Date: 20061013
  Serious: No
  Sender: FDA-Public Use
  Company Number: None

PATIENT
  Age: 16 Year
  Sex: Female
  Weight: 65.2 kg

DRUGS (12)
  1. CARIMUNE [Suspect]
     Indication: CYTOMEGALOVIRUS INFECTION
     Dosage: 24 GRAMS WEEKLY IV DRIP
     Route: 041
     Dates: start: 20060430, end: 20060512
  2. CARIMUNE [Suspect]
     Indication: PNEUMONIA
     Dosage: 24 GRAMS WEEKLY IV DRIP
     Route: 041
     Dates: start: 20060430, end: 20060512
  3. GANCICLOVIR [Concomitant]
  4. LISINOPRIL [Concomitant]
  5. ORTHO TRI-CYCLEN [Concomitant]
  6. URSODIOL [Concomitant]
  7. CLOTRIMAZOLE TROCHES [Concomitant]
  8. LEVOFLOXACIN [Concomitant]
  9. DRONABINOL [Concomitant]
  10. AMBISOME [Concomitant]
  11. GRANISETRON  HCL [Concomitant]
  12. LANSOPRAZOLE [Concomitant]

REACTIONS (9)
  - BLOOD PRESSURE DIASTOLIC DECREASED [None]
  - BREATH SOUNDS ABNORMAL [None]
  - CHILLS [None]
  - INFUSION RELATED REACTION [None]
  - MENINGOCOCCAL INFECTION [None]
  - OXYGEN SATURATION DECREASED [None]
  - PERIPHERAL COLDNESS [None]
  - SHOULDER PAIN [None]
  - TACHYPNOEA [None]
